FAERS Safety Report 5470298-X (Version None)
Quarter: 2007Q3

REPORT INFORMATION
  Report Type: 
  Country: None (occurrence: None)
  Receive Date: 20070924
  Receipt Date: 20070910
  Transmission Date: 20080115
  Serious: Yes (Hospitalization)
  Sender: FDA-Public Use
  Company Number: 2007BI014079

PATIENT
  Age: 57 Year
  Sex: Male

DRUGS (7)
  1. NATALIZUMAB [Suspect]
     Indication: MULTIPLE SCLEROSIS
     Dosage: 300 MG; QM; IV
     Route: 042
     Dates: start: 20061007
  2. BACLOFEN [Concomitant]
  3. PROZAC [Concomitant]
  4. NITROFURANTOIN [Concomitant]
  5. BENADRYL [Concomitant]
  6. FLONASE [Concomitant]
  7. AMBIEN [Concomitant]

REACTIONS (7)
  - ALPHA HAEMOLYTIC STREPTOCOCCAL INFECTION [None]
  - CELLULITIS [None]
  - CULTURE WOUND POSITIVE [None]
  - INFECTED SKIN ULCER [None]
  - KLEBSIELLA INFECTION [None]
  - NO THERAPEUTIC RESPONSE [None]
  - OSTEOPENIA [None]
